FAERS Safety Report 17240978 (Version 1)
Quarter: 2020Q1

REPORT INFORMATION
  Report Type: Spontaneous
  Country: GB (occurrence: GB)
  Receive Date: 20200107
  Receipt Date: 20200107
  Transmission Date: 20200409
  Serious: Yes (Other)
  Sender: FDA-Public Use
  Company Number: GB-TEVA-2019-GB-1162950

PATIENT
  Age: 50 Year
  Sex: Male

DRUGS (11)
  1. ATROPINE. [Concomitant]
     Active Substance: ATROPINE
  2. OXALIPLATIN. [Suspect]
     Active Substance: OXALIPLATIN
     Indication: PANCREATIC CARCINOMA
     Dosage: UNKNOWN
     Route: 065
  3. APREPITANT. [Concomitant]
     Active Substance: APREPITANT
  4. LOPERAMIDE [Concomitant]
     Active Substance: LOPERAMIDE
  5. IRINOTECAN [Suspect]
     Active Substance: IRINOTECAN
     Indication: PANCREATIC CARCINOMA
     Dosage: UNKNOWN
     Route: 065
  6. CALCIUM FOLINATE [Suspect]
     Active Substance: LEUCOVORIN CALCIUM
     Indication: PANCREATIC CARCINOMA
     Dosage: UNKNOWN
     Route: 065
  7. DEXAMETHASONE. [Concomitant]
     Active Substance: DEXAMETHASONE
  8. DOMPERIDONE [Concomitant]
     Active Substance: DOMPERIDONE
  9. LIPEGFILGRASTIM [Concomitant]
     Active Substance: LIPEGFILGRASTIM
  10. FLUOROURACIL. [Suspect]
     Active Substance: FLUOROURACIL
     Indication: PANCREATIC CARCINOMA
     Dosage: UNKNOWN
     Route: 065
  11. PALONOSETRON. [Concomitant]
     Active Substance: PALONOSETRON HYDROCHLORIDE

REACTIONS (6)
  - Gingival pain [Unknown]
  - Epistaxis [Unknown]
  - Neuropathy peripheral [Unknown]
  - Dysgeusia [Unknown]
  - Fatigue [Unknown]
  - Alopecia [Unknown]
